FAERS Safety Report 13103534 (Version 4)
Quarter: 2017Q1

REPORT INFORMATION
  Report Type: Spontaneous
  Country: US (occurrence: US)
  Receive Date: 20170111
  Receipt Date: 20170223
  Transmission Date: 20170428
  Serious: Yes (Other)
  Sender: FDA-Public Use
  Company Number: US-HORIZON-PEN-0001-2017

PATIENT
  Age: 60 Year
  Sex: Male

DRUGS (11)
  1. BACLOFEN. [Concomitant]
     Active Substance: BACLOFEN
     Dosage: 1-3 TABLETS DAILY
  2. PENNSAID [Suspect]
     Active Substance: DICLOFENAC SODIUM
     Indication: BURSITIS
     Dosage: BID
     Route: 061
     Dates: start: 20161230, end: 20161231
  3. TOPROL XL [Concomitant]
     Active Substance: METOPROLOL SUCCINATE
     Dosage: 50 MG TABLETS-1 DAILY
  4. OXYCODONE [Concomitant]
     Active Substance: OXYCODONE
     Dosage: 7.25/350 AS NEEDED
  5. LORATADINE. [Concomitant]
     Active Substance: LORATADINE
     Dosage: DAILY
  6. TRAZODONE [Concomitant]
     Active Substance: TRAZODONE HYDROCHLORIDE
     Dosage: 100 MG TABLETS-2 TABLETS AT BEDTIME
  7. CITALOPRAM [Concomitant]
     Active Substance: CITALOPRAM HYDROBROMIDE
     Dosage: 20 MG-1.5 TABLETS DAILY
  8. OXYCONTIN [Concomitant]
     Active Substance: OXYCODONE HYDROCHLORIDE
     Dosage: 40 MG DAILY
  9. ANDROGEL [Concomitant]
     Active Substance: TESTOSTERONE
     Dosage: 1.62 %-3 PUMPS DAILY
  10. ZANAFLEX [Concomitant]
     Active Substance: TIZANIDINE HYDROCHLORIDE
     Dosage: 4 MG TABLETS- 2 TIMES A NIGHT
  11. MULTIVITAMINS [Concomitant]
     Active Substance: VITAMINS

REACTIONS (11)
  - Asthenia [Recovering/Resolving]
  - Diarrhoea [Recovered/Resolved]
  - Rash [Recovering/Resolving]
  - Pruritus [Recovering/Resolving]
  - Myocardial infarction [Unknown]
  - Urticaria [Not Recovered/Not Resolved]
  - Off label use [Unknown]
  - Skin burning sensation [Recovering/Resolving]
  - Dizziness [Recovering/Resolving]
  - Application site reaction [Unknown]
  - Palpitations [Recovered/Resolved]

NARRATIVE: CASE EVENT DATE: 20161230
